FAERS Safety Report 6601695-4 (Version None)
Quarter: 2010Q1

REPORT INFORMATION
  Report Type: 
  Country: None (occurrence: None)
  Receive Date: 20100225
  Receipt Date: 20100217
  Transmission Date: 20100710
  Serious: Yes (Hospitalization)
  Sender: FDA-Public Use
  Company Number: MX-ROCHE-686946

PATIENT
  Age: 69 Year
  Sex: Female

DRUGS (15)
  1. TRASTUZUMAB [Suspect]
     Indication: BREAST CANCER
     Route: 042
     Dates: start: 20090917, end: 20090917
  2. TRASTUZUMAB [Suspect]
     Route: 042
     Dates: start: 20091009, end: 20091009
  3. TRASTUZUMAB [Suspect]
     Route: 042
     Dates: start: 20091029, end: 20091029
  4. TRASTUZUMAB [Suspect]
     Route: 042
     Dates: start: 20091120, end: 20091120
  5. DOCETAXEL [Suspect]
     Indication: BREAST CANCER
     Dosage: FREQUENCY :EVERY CYCLE
     Route: 042
     Dates: start: 20090917, end: 20090917
  6. DOCETAXEL [Suspect]
     Dosage: FREQUENCY :EVERY CYCLE
     Route: 042
     Dates: start: 20091009, end: 20091009
  7. DOCETAXEL [Suspect]
     Dosage: FREQUENCY :EVERY CYCLE
     Route: 042
     Dates: start: 20091029, end: 20091029
  8. DOCETAXEL [Suspect]
     Route: 042
     Dates: start: 20091120, end: 20091120
  9. DOCETAXEL [Suspect]
     Dosage: DOSE REDUCED 25%
     Route: 042
  10. CYCLOPHOSPHAMIDE [Suspect]
     Indication: BREAST CANCER
     Dosage: FREQUENCY REPORTED AS EVERY CYCLE
     Route: 042
     Dates: start: 20090917, end: 20090917
  11. CYCLOPHOSPHAMIDE [Suspect]
     Dosage: FREQUENCY REPORTED AS EVERY CYCLE
     Route: 042
     Dates: start: 20091009, end: 20091009
  12. CYCLOPHOSPHAMIDE [Suspect]
     Route: 042
     Dates: start: 20091029, end: 20091029
  13. CYCLOPHOSPHAMIDE [Suspect]
     Route: 042
     Dates: start: 20091120, end: 20091120
  14. OMEPRAZOL [Concomitant]
  15. ONDANSETRON [Concomitant]

REACTIONS (7)
  - ABDOMINAL PAIN UPPER [None]
  - ASTHENIA [None]
  - DYSPHAGIA [None]
  - FATIGUE [None]
  - FEBRILE NEUTROPENIA [None]
  - GASTRITIS [None]
  - PYREXIA [None]
